FAERS Safety Report 22358165 (Version 3)
Quarter: 2023Q2

REPORT INFORMATION
  Report Type: Spontaneous
  Country: US (occurrence: US)
  Receive Date: 20230524
  Receipt Date: 20230626
  Transmission Date: 20230722
  Serious: Yes (Other)
  Sender: FDA-Public Use
  Company Number: US-002147023-NVSC2023US118560

PATIENT
  Age: 81 Year
  Sex: Male
  Weight: 73.21 kg

DRUGS (1)
  1. PLUVICTO [Suspect]
     Active Substance: LUTETIUM LU-177 VIPIVOTIDE TETRAXETAN
     Indication: Product used for unknown indication
     Dosage: UNK
     Route: 042
     Dates: start: 20230130, end: 20230320

REACTIONS (4)
  - Ill-defined disorder [Unknown]
  - Dysuria [Unknown]
  - Pollakiuria [Unknown]
  - Haematuria [Unknown]

NARRATIVE: CASE EVENT DATE: 20230522
